FAERS Safety Report 8196251-3 (Version None)
Quarter: 2012Q1

REPORT INFORMATION
  Report Type: 
  Country: None (occurrence: None)
  Receive Date: 20120307
  Receipt Date: 20120307
  Transmission Date: 20120608
  Serious: Yes (Other)
  Sender: FDA-Public Use
  Company Number: None

PATIENT
  Sex: Female

DRUGS (1)
  1. ENBREL SURECLICK 50MG AMGEN INC. [Suspect]
     Dosage: 50MG QW SQ
     Route: 058

REACTIONS (2)
  - EPISTAXIS [None]
  - METRORRHAGIA [None]
